FAERS Safety Report 6876979-5 (Version None)
Quarter: 2010Q3

REPORT INFORMATION
  Report Type: 
  Country: None (occurrence: None)
  Receive Date: 20100727
  Receipt Date: 20100713
  Transmission Date: 20110219
  Serious: Yes (Hospitalization, Other)
  Sender: FDA-Public Use
  Company Number: US-ELI_LILLY_AND_COMPANY-US201005006415

PATIENT
  Sex: Female

DRUGS (8)
  1. FORTEO [Suspect]
     Indication: OSTEOPOROSIS
     Dosage: 20 UG, DAILY (1/D)
     Dates: start: 20100118
  2. PLAVIX [Concomitant]
  3. AMIODARONE HCL [Concomitant]
  4. HYDROCHLOROTHIAZIDE [Concomitant]
  5. POTASSIUM [Concomitant]
  6. VITAMIN D [Concomitant]
  7. TYLENOL (CAPLET) [Concomitant]
  8. ASCORBIC ACID [Concomitant]

REACTIONS (9)
  - BLOOD POTASSIUM DECREASED [None]
  - CEREBROVASCULAR DISORDER [None]
  - ISCHAEMIC STROKE [None]
  - MOVEMENT DISORDER [None]
  - NECK PAIN [None]
  - PAIN IN EXTREMITY [None]
  - PALPITATIONS [None]
  - PARAESTHESIA [None]
  - RED BLOOD CELL COUNT INCREASED [None]
